FAERS Safety Report 7711936-8 (Version None)
Quarter: 2011Q3

REPORT INFORMATION
  Report Type: 
  Country: None (occurrence: None)
  Receive Date: 20110826
  Receipt Date: 20110822
  Transmission Date: 20111222
  Serious: Yes (Other)
  Sender: FDA-Public Use
  Company Number: TR-BRISTOL-MYERS SQUIBB COMPANY-16000630

PATIENT
  Age: 7 Year
  Sex: Male

DRUGS (4)
  1. ADRIAMYCIN PFS [Suspect]
     Indication: HODGKIN'S DISEASE
     Dosage: ON DAY 1 AND 15.
     Route: 042
  2. BLEOMYCIN SULFATE [Suspect]
     Indication: HODGKIN'S DISEASE
     Dosage: ON DAY 1 AND 15.
     Route: 042
  3. VINBLASTINE SULFATE [Suspect]
     Indication: HODGKIN'S DISEASE
     Dosage: ON DAY 1 AND 15.
     Route: 042
  4. DACARBAZINE [Suspect]
     Indication: HODGKIN'S DISEASE
     Dosage: ON DAY 1 AND 15.
     Route: 042

REACTIONS (2)
  - THYROID NEOPLASM [None]
  - HYPOTHYROIDISM [None]
